FAERS Safety Report 6431299-8 (Version None)
Quarter: 2009Q4

REPORT INFORMATION
  Report Type: 
  Country: None (occurrence: None)
  Receive Date: 20091106
  Receipt Date: 20091026
  Transmission Date: 20100525
  Serious: Yes (Other)
  Sender: FDA-Public Use
  Company Number: CA-ELI_LILLY_AND_COMPANY-CA200909006436

PATIENT
  Age: 62 Year
  Sex: Male

DRUGS (3)
  1. CIALIS [Suspect]
     Indication: ERECTILE DYSFUNCTION
     Dosage: 20 MG, UNKNOWN
     Route: 065
     Dates: start: 20090501, end: 20090101
  2. CIALIS [Suspect]
     Dosage: 10 MG, UNKNOWN
     Route: 065
     Dates: start: 20090625, end: 20090101
  3. PINDOLOL [Concomitant]
     Dosage: 5 MG, DAILY (1/D)
     Route: 065

REACTIONS (16)
  - CHEST PAIN [None]
  - COUGH [None]
  - DIARRHOEA [None]
  - DIET REFUSAL [None]
  - DYSPEPSIA [None]
  - DYSSTASIA [None]
  - GASTROOESOPHAGEAL REFLUX DISEASE [None]
  - HIATUS HERNIA [None]
  - HYPOTENSION [None]
  - LOSS OF CONSCIOUSNESS [None]
  - NAUSEA [None]
  - PAIN IN EXTREMITY [None]
  - RETCHING [None]
  - SYNCOPE [None]
  - VIRAL INFECTION [None]
  - VOMITING [None]
